FAERS Safety Report 23207233 (Version 1)
Quarter: 2023Q4

REPORT INFORMATION
  Report Type: Spontaneous
  Country: US (occurrence: US)
  Receive Date: 20231120
  Receipt Date: 20231120
  Transmission Date: 20240110
  Serious: No
  Sender: FDA-Public Use
  Company Number: US-BRACCO-2023US01678

PATIENT
  Sex: Female

DRUGS (5)
  1. LUMASON [Suspect]
     Active Substance: SULFUR HEXAFLUORIDE
     Indication: Stress echocardiogram
     Dosage: 1.5 ML, SINGLE
     Route: 042
     Dates: start: 20230405, end: 20230405
  2. LUMASON [Suspect]
     Active Substance: SULFUR HEXAFLUORIDE
     Indication: Stress echocardiogram
     Dosage: 1.5 ML, SINGLE
     Route: 042
     Dates: start: 20230405, end: 20230405
  3. LUMASON [Suspect]
     Active Substance: SULFUR HEXAFLUORIDE
     Indication: Stress echocardiogram
     Dosage: 1.5 ML, SINGLE
     Route: 042
     Dates: start: 20230405, end: 20230405
  4. LIPITOR [Concomitant]
     Active Substance: ATORVASTATIN CALCIUM
  5. COZAAR [Concomitant]
     Active Substance: LOSARTAN POTASSIUM

REACTIONS (8)
  - Paraesthesia [Recovered/Resolved]
  - Pruritus [Recovered/Resolved]
  - Dysgeusia [Recovered/Resolved]
  - Dizziness [Recovered/Resolved]
  - Palpitations [Recovered/Resolved]
  - Nausea [Recovered/Resolved]
  - Hyperhidrosis [Recovered/Resolved]
  - Lethargy [Recovered/Resolved]

NARRATIVE: CASE EVENT DATE: 20230405
